FAERS Safety Report 16418130 (Version 1)
Quarter: 2019Q2

REPORT INFORMATION
  Report Type: Spontaneous
  Country: US (occurrence: US)
  Receive Date: 20190611
  Receipt Date: 20190611
  Transmission Date: 20190711
  Serious: Yes (Hospitalization, Other)
  Sender: FDA-Public Use
  Company Number: US-ROCHE-2335009

PATIENT
  Sex: Female

DRUGS (1)
  1. XOLAIR [Suspect]
     Active Substance: OMALIZUMAB
     Indication: URTICARIA
     Route: 058
     Dates: start: 20190509, end: 20190605

REACTIONS (4)
  - Urticaria [Unknown]
  - Off label use [Unknown]
  - Fatigue [Unknown]
  - Intentional product use issue [Unknown]
